FAERS Safety Report 9525353 (Version 2)
Quarter: 2013Q3

REPORT INFORMATION
  Report Type: Spontaneous
  Country: US (occurrence: None)
  Receive Date: 20130912
  Receipt Date: 20130927
  Transmission Date: 20140515
  Serious: Yes (Hospitalization)
  Sender: FDA-Public Use
  Company Number: USA/USA/13/0034500

PATIENT
  Age: 45 Year
  Sex: Male

DRUGS (3)
  1. RANITIDINE [Suspect]
     Indication: GASTROOESOPHAGEAL REFLUX DISEASE
     Route: 048
     Dates: end: 20130831
  2. CYMBALTA (DULOXETINE HYDROCHLORIDE) [Concomitant]
  3. METHADONE (METHADONE) [Concomitant]

REACTIONS (7)
  - Urinary tract infection [None]
  - Lethargy [None]
  - Somnolence [None]
  - Blood pressure increased [None]
  - Headache [None]
  - Vomiting [None]
  - Product quality issue [None]
